FAERS Safety Report 7234967-3 (Version None)
Quarter: 2011Q1

REPORT INFORMATION
  Report Type: 
  Country: None (occurrence: None)
  Receive Date: 20110120
  Receipt Date: 20101221
  Transmission Date: 20110831
  Serious: Yes (Other)
  Sender: FDA-Public Use
  Company Number: US-BAYER-201019548NA

PATIENT
  Sex: Female
  Weight: 59.091 kg

DRUGS (7)
  1. ONE A DAY [Concomitant]
     Indication: VITAMIN SUPPLEMENTATION
     Route: 048
     Dates: start: 19850101
  2. OENOTHERA BIENNIS OIL [Concomitant]
     Route: 048
  3. EVENING PRIMROSE OIL [Concomitant]
     Route: 048
  4. ADVIL [Concomitant]
     Route: 048
  5. ONE-A-DAY [MINERALS NOS,VITAMINS NOS] [Concomitant]
     Route: 048
     Dates: start: 19850101
  6. YAZ [Suspect]
     Indication: ORAL CONTRACEPTION
     Route: 048
     Dates: start: 20090707, end: 20090810
  7. ANTIBIOTICS [Concomitant]
     Route: 065

REACTIONS (2)
  - INTRACRANIAL VENOUS SINUS THROMBOSIS [None]
  - CEREBRAL HAEMORRHAGE [None]
